FAERS Safety Report 11260544 (Version 1)
Quarter: 2015Q3

REPORT INFORMATION
  Report Type: Spontaneous
  Country: US (occurrence: US)
  Receive Date: 20150710
  Receipt Date: 20150710
  Transmission Date: 20151125
  Serious: Yes (Hospitalization, Other)
  Sender: FDA-Public Use
  Company Number: US-PROCTER_AND_GAMBLE-CIO15041413

PATIENT
  Age: 59 Year
  Sex: Male

DRUGS (3)
  1. ZZZQUIL NIGHTTIME SLEEP-AID [Suspect]
     Active Substance: DIPHENHYDRAMINE HYDROCHLORIDE
     Indication: COUGH
     Dosage: UNK
     Route: 048
  2. NYQUIL NOS [Suspect]
     Active Substance: ACETAMINOPHEN\CHLORPHENIRAMINE\DEXTROMETHORPHAN\DIPHENHYDRAMINE\DOXYLAMINE\PSEUDOEPHEDRINE
     Indication: COUGH
     Dosage: UNK
     Route: 048
  3. DAYQUIL NOS [Suspect]
     Active Substance: ACETAMINOPHEN\BROMPHENIRAMINE\CHLORPHENIRAMINE\DEXTROMETHORPHAN\GUAIFENESIN\IBUPROFEN\PHENYLEPHRINE\PHENYLPROPANOLAMINE\PSEUDOEPHEDRINE
     Indication: COUGH
     Dosage: UNK
     Route: 048

REACTIONS (4)
  - Drug screen positive [Unknown]
  - Chromaturia [Unknown]
  - Seizure [Unknown]
  - Labelled drug-drug interaction medication error [Unknown]
